FAERS Safety Report 11677938 (Version 1)
Quarter: 2015Q4

REPORT INFORMATION
  Report Type: Spontaneous
  Country: US (occurrence: US)
  Receive Date: 20151027
  Receipt Date: 20151027
  Transmission Date: 20160304
  Serious: No
  Sender: FDA-Public Use
  Company Number: US-ELI_LILLY_AND_COMPANY-US201010006842

PATIENT
  Sex: Female

DRUGS (5)
  1. POSTURE-D [Concomitant]
     Dosage: UNK, 2/D
  2. LOPRESSOR [Concomitant]
     Active Substance: METOPROLOL TARTRATE
     Dosage: 25 MG, QOD
  3. VITAMIN D [Concomitant]
     Active Substance: CHOLECALCIFEROL
     Dosage: 50000 IU, 2/D
  4. FORTEO [Suspect]
     Active Substance: TERIPARATIDE
     Indication: OSTEOPOROSIS
     Dosage: 20 UG, DAILY (1/D)
     Dates: start: 200802, end: 201005
  5. LIPITOR [Concomitant]
     Active Substance: ATORVASTATIN CALCIUM
     Dosage: 20 MG, DAILY (1/D)

REACTIONS (13)
  - Crepitations [Unknown]
  - Vision blurred [Recovered/Resolved]
  - Fall [Unknown]
  - Bone density decreased [Unknown]
  - Foot fracture [Recovering/Resolving]
  - Hypertension [Recovered/Resolved]
  - Pain in jaw [Not Recovered/Not Resolved]
  - Bone pain [Unknown]
  - Sternal fracture [Recovered/Resolved]
  - Hand fracture [Recovered/Resolved]
  - Pain [Unknown]
  - Eye disorder [Recovered/Resolved]
  - Head discomfort [Recovered/Resolved]

NARRATIVE: CASE EVENT DATE: 2008
